FAERS Safety Report 7759789-6 (Version None)
Quarter: 2011Q3

REPORT INFORMATION
  Report Type: 
  Country: None (occurrence: None)
  Receive Date: 20110919
  Receipt Date: 20110802
  Transmission Date: 20111222
  Serious: Yes (Hospitalization)
  Sender: FDA-Public Use
  Company Number: JP-AMGEN-JPNCT2011012910

PATIENT
  Age: 40 Year
  Sex: Female

DRUGS (8)
  1. ALFAROL [Concomitant]
     Indication: OSTEOPOROSIS
     Dosage: 0.25 MUG, QD
     Route: 048
     Dates: start: 20080630
  2. LANSOPRAZOLE [Concomitant]
     Indication: GASTRITIS
     Dosage: 30 MG, PRN
     Route: 048
     Dates: start: 20100419
  3. FERROUS CITRATE [Concomitant]
     Indication: IRON DEFICIENCY ANAEMIA
     Dosage: 50 MG, QD
     Route: 048
     Dates: start: 20080630
  4. CARVEDILOL [Concomitant]
     Indication: CARDIAC FAILURE
     Dosage: 2.5 MG, BID
     Route: 048
     Dates: start: 20070224
  5. ROMIPLOSTIM [Suspect]
     Indication: IDIOPATHIC THROMBOCYTOPENIC PURPURA
     Dosage: 8 MUG/KG, QWK
     Dates: start: 20081216, end: 20110509
  6. PREDNISOLONE [Concomitant]
     Indication: THROMBOCYTOPENIA
     Dosage: 5 MG, QD
     Route: 048
     Dates: start: 20090901
  7. TAMBOCOR [Concomitant]
     Dosage: 50 MG, BID
     Dates: start: 20070224
  8. PIMENOL [Concomitant]
     Indication: ARRHYTHMIA
     Dosage: 50 MG, BID
     Route: 048
     Dates: start: 20101203

REACTIONS (1)
  - ARRHYTHMIA [None]
